FAERS Safety Report 6657911-6 (Version None)
Quarter: 2010Q1

REPORT INFORMATION
  Report Type: 
  Country: None (occurrence: None)
  Receive Date: 20100330
  Receipt Date: 20100319
  Transmission Date: 20100710
  Serious: Yes (Hospitalization, Other)
  Sender: FDA-Public Use
  Company Number: US-ROCHE-693195

PATIENT
  Sex: Female
  Weight: 92.7 kg

DRUGS (2)
  1. BEVACIZUMAB [Suspect]
     Indication: GLIOBLASTOMA MULTIFORME
     Dosage: BEGINNING AT WEEK 4, START DATE OF COURSE ASSOCIATED WITH EXPEDITED REPORT: 03 MAR 2010
     Route: 042
  2. TEMOZOLOMIDE [Suspect]
     Indication: GLIOBLASTOMA MULTIFORME
     Route: 048
     Dates: start: 20100303

REACTIONS (3)
  - CONSTIPATION [None]
  - HYPERGLYCAEMIA [None]
  - OEDEMA [None]
